FAERS Safety Report 6321950-5 (Version None)
Quarter: 2009Q3

REPORT INFORMATION
  Report Type: 
  Country: None (occurrence: None)
  Receive Date: 20090824
  Receipt Date: 20090819
  Transmission Date: 20100115
  Serious: Yes (Death, Hospitalization)
  Sender: FDA-Public Use
  Company Number: JP-ASTRAZENECA-2009SE04188

PATIENT
  Age: 78 Year
  Sex: Female
  Weight: 43 kg

DRUGS (11)
  1. IRESSA [Suspect]
     Indication: NON-SMALL CELL LUNG CANCER
     Route: 048
     Dates: start: 20090529, end: 20090608
  2. GASMOTIN [Concomitant]
     Indication: GASTRITIS
     Route: 048
     Dates: start: 20090515
  3. NOVAMIN [Concomitant]
     Indication: VOMITING
     Route: 048
     Dates: start: 20090421
  4. LOXONIN [Concomitant]
     Indication: CANCER PAIN
     Route: 048
     Dates: start: 20090319
  5. CALONAL [Concomitant]
     Indication: CANCER PAIN
     Route: 048
     Dates: start: 20090507
  6. TAKEPRON [Concomitant]
     Indication: GASTRITIS
     Route: 048
     Dates: start: 20090514
  7. UNKNOWNDRUG [Concomitant]
     Indication: CONSTIPATION
     Route: 048
     Dates: start: 20090319
  8. DECADRON [Concomitant]
     Dosage: DOSE UNKNOWN
     Route: 048
  9. DUROTEP [Concomitant]
     Indication: CANCER PAIN
     Route: 062
     Dates: start: 20090507
  10. OXINORM [Concomitant]
     Indication: CANCER PAIN
     Dosage: DOSE UNKNOWN
     Route: 048
     Dates: start: 20090422
  11. BFLUID [Concomitant]
     Dosage: DOSE UNKNOWN
     Route: 041

REACTIONS (2)
  - INTERSTITIAL LUNG DISEASE [None]
  - LUNG ADENOCARCINOMA [None]
